FAERS Safety Report 5143021-6 (Version None)
Quarter: 2006Q4

REPORT INFORMATION
  Report Type: 
  Country: None (occurrence: None)
  Receive Date: 20061103
  Receipt Date: 20060906
  Transmission Date: 20070319
  Serious: Yes (Hospitalization)
  Sender: FDA-Public Use
  Company Number: US-ELI_LILLY_AND_COMPANY-US200609002164

PATIENT
  Age: 44 Year
  Sex: Male
  Weight: 107.94 kg

DRUGS (6)
  1. ZYPREXA [Suspect]
     Indication: SCHIZOPHRENIA
     Dosage: 20 MG, UNKNOWN
     Dates: start: 20060104, end: 20060607
  2. ZYPREXA [Suspect]
     Dosage: 5 MG, UNKNOWN
     Dates: start: 20060608
  3. ZYPREXA [Suspect]
     Dosage: 10 MG, UNKNOWN
     Dates: start: 20021101, end: 20060103
  4. ABILIFY [Concomitant]
     Dosage: UNK, UNKNOWN
     Dates: start: 20060518
  5. PREDNISOLONE [Concomitant]
     Dosage: UNK, UNKNOWN
     Dates: start: 20030101
  6. TRIAMCINOLONE [Concomitant]
     Dosage: UNK, UNKNOWN
     Dates: start: 20030101

REACTIONS (4)
  - DIABETES MELLITUS NON-INSULIN-DEPENDENT [None]
  - METABOLIC DISORDER [None]
  - SKIN INFECTION [None]
  - VISION BLURRED [None]
